FAERS Safety Report 5063099-8 (Version None)
Quarter: 2006Q3

REPORT INFORMATION
  Report Type: 
  Country: None (occurrence: None)
  Receive Date: 20060725
  Receipt Date: 20060725
  Transmission Date: 20061208
  Serious: Yes (Life-Threatening, Hospitalization)
  Sender: FDA-Public Use
  Company Number: None

PATIENT
  Age: 74 Year
  Sex: Female
  Weight: 69.4 kg

DRUGS (4)
  1. IFEX   1GRAM VIAL BAXTER [Suspect]
     Indication: NEOPLASM MALIGNANT
     Dosage: IREX 3517MG/NS 500ML OVER 4HRS Q24HS X3 IV
     Route: 042
     Dates: start: 20060710, end: 20060711
  2. IFEX   1GRAM VIAL BAXTER [Suspect]
     Indication: SARCOMA
     Dosage: IREX 3517MG/NS 500ML OVER 4HRS Q24HS X3 IV
     Route: 042
     Dates: start: 20060710, end: 20060711
  3. MESNA [Concomitant]
  4. DOXORUBICIN [Concomitant]

REACTIONS (5)
  - ANGIOPATHY [None]
  - DISEASE PROGRESSION [None]
  - ENCEPHALOPATHY [None]
  - MENTAL STATUS CHANGES [None]
  - METASTASES TO CENTRAL NERVOUS SYSTEM [None]
